FAERS Safety Report 25479977 (Version 2)
Quarter: 2025Q3

REPORT INFORMATION
  Report Type: Report from Study
  Country: GB (occurrence: GB)
  Receive Date: 20250625
  Receipt Date: 20250704
  Transmission Date: 20251021
  Serious: Yes (Hospitalization)
  Sender: NOVARTIS
  Company Number: GB-002147023-NVSC2020GB058656

PATIENT
  Sex: Male

DRUGS (3)
  1. COSENTYX [Suspect]
     Active Substance: SECUKINUMAB
     Indication: Psoriasis
     Dosage: 300 MG, QMO
     Route: 058
     Dates: start: 20191125
  2. COSENTYX [Suspect]
     Active Substance: SECUKINUMAB
     Route: 058
     Dates: start: 20191216
  3. ASPIRIN [Concomitant]
     Active Substance: ASPIRIN
     Indication: Product used for unknown indication
     Route: 065

REACTIONS (12)
  - Psoriasis [Unknown]
  - Skin lesion [Unknown]
  - Chest pain [Unknown]
  - Fall [Unknown]
  - Hand fracture [Unknown]
  - Implant site pain [Unknown]
  - Illness [Not Recovered/Not Resolved]
  - Asthenia [Not Recovered/Not Resolved]
  - Fatigue [Not Recovered/Not Resolved]
  - Drug ineffective [Unknown]
  - Cystitis [Not Recovered/Not Resolved]
  - Malaise [Not Recovered/Not Resolved]
